FAERS Safety Report 12975638 (Version 1)
Quarter: 2016Q4

REPORT INFORMATION
  Report Type: Spontaneous
  Country: US (occurrence: US)
  Receive Date: 20161125
  Receipt Date: 20161125
  Transmission Date: 20170207
  Serious: No
  Sender: FDA-Public Use
  Company Number: US-ASTRAZENECA-2016SF13413

PATIENT
  Age: 24388 Day
  Sex: Male

DRUGS (1)
  1. SYMBICORT [Suspect]
     Active Substance: BUDESONIDE\FORMOTEROL FUMARATE DIHYDRATE
     Dosage: 160/4.5 MCG 2 PUFFS TWICE A DAY
     Route: 055
     Dates: start: 20161014

REACTIONS (8)
  - Intentional product misuse [Not Recovered/Not Resolved]
  - Frustration tolerance decreased [Not Recovered/Not Resolved]
  - Malaise [Unknown]
  - Pneumonia [Unknown]
  - Bronchitis [Unknown]
  - Drug dose omission [Unknown]
  - Sinus disorder [Unknown]
  - Product selection error [Not Recovered/Not Resolved]

NARRATIVE: CASE EVENT DATE: 20160906
